FAERS Safety Report 4794936-X (Version None)
Quarter: 2005Q4

REPORT INFORMATION
  Report Type: 
  Country: None (occurrence: None)
  Receive Date: 20051012
  Receipt Date: 20051003
  Transmission Date: 20060501
  Serious: Yes (Hospitalization)
  Sender: FDA-Public Use
  Company Number: US-ABBOTT-05P-163-0312656-00

PATIENT
  Age: 43 Year
  Sex: Male
  Weight: 90.8 kg

DRUGS (3)
  1. DEPAKOTE [Suspect]
     Indication: MANIA
     Route: 048
     Dates: start: 20030101
  2. DEPAKOTE [Suspect]
     Indication: BIPOLAR DISORDER
  3. BENOCAR [Concomitant]
     Indication: BLOOD PRESSURE INCREASED
     Route: 048
     Dates: start: 20020101

REACTIONS (2)
  - DIVERTICULITIS [None]
  - STOOL ANALYSIS ABNORMAL [None]
